FAERS Safety Report 4308725-3 (Version None)
Quarter: 2004Q1

REPORT INFORMATION
  Report Type: 
  Country: None (occurrence: None)
  Receive Date: 20040227
  Receipt Date: 20040219
  Transmission Date: 20041129
  Serious: Yes (Death)
  Sender: FDA-Public Use
  Company Number: USA-2004-0013208

PATIENT
  Sex: Female

DRUGS (1)
  1. OXYCONTIN [Suspect]
     Indication: PAIN
     Dosage: 10 MG, OTHER
     Route: 050

REACTIONS (4)
  - ANOREXIA [None]
  - MALAISE [None]
  - MEDICATION ERROR [None]
  - WEIGHT DECREASED [None]
